FAERS Safety Report 4928412-8 (Version None)
Quarter: 2006Q1

REPORT INFORMATION
  Report Type: 
  Country: None (occurrence: None)
  Receive Date: 20060223
  Receipt Date: 20060210
  Transmission Date: 20060701
  Serious: Yes (Hospitalization)
  Sender: FDA-Public Use
  Company Number: 2006-034

PATIENT
  Age: 76 Year
  Sex: Male

DRUGS (4)
  1. AZITHROMYCIN [Suspect]
     Indication: PHARYNGITIS
     Dosage: 500MG DAILY
  2. METOCLOPRAMIDE [Concomitant]
  3. CHLORPROMAZINE [Concomitant]
  4. CISAPRIDE [Concomitant]

REACTIONS (5)
  - DYSPHAGIA [None]
  - FATIGUE [None]
  - HICCUPS [None]
  - ORAL INTAKE REDUCED [None]
  - THERAPY NON-RESPONDER [None]
